FAERS Safety Report 8766244 (Version 1)
Quarter: 2012Q4

REPORT INFORMATION
  Report Type: 
  Country: JP (occurrence: JP)
  Receive Date: 20120904
  Receipt Date: 20120904
  Transmission Date: 20130627
  Serious: Yes (Hospitalization, Other)
  Sender: FDA-Public Use
  Company Number: JP-009507513-1208JPN011790

PATIENT

DRUGS (21)
  1. TAKEPRON [Concomitant]
     Dosage: 15 mg, qd
     Route: 048
  2. LENDORMIN [Concomitant]
     Dosage: 0.25 mg, qd
     Route: 048
  3. MAGMITT [Concomitant]
     Dosage: 1500 mg, qd
     Route: 048
  4. LOXONIN [Concomitant]
     Dosage: 60 mg, qd
     Route: 048
  5. ALLEGRA [Concomitant]
     Dosage: 120 mg, qd
     Route: 048
  6. ANTEBATE [Concomitant]
     Dosage: daily dose unknown
     Route: 061
     Dates: start: 20120504
  7. SOLDEM 3A [Concomitant]
     Dosage: 500 ml, qd
     Route: 051
     Dates: start: 20120505, end: 20120508
  8. LACTEC [Concomitant]
     Dosage: 500 ml, qd
     Route: 051
     Dates: start: 20120508, end: 20120529
  9. ZYLORIC [Concomitant]
     Dosage: 100 mg, qd
     Route: 048
     Dates: start: 20120508
  10. ALDACTONE A [Concomitant]
     Dosage: 25 mg, qd
     Dates: start: 20120605
  11. GASMOTIN [Concomitant]
     Indication: ENTEROCOLITIS
     Dosage: 15 mg, qd
     Route: 048
     Dates: start: 20120605
  12. GASMOTIN [Concomitant]
     Dosage: 15 mg, qd
     Route: 048
     Dates: start: 20120724
  13. PEGINTRON [Suspect]
     Indication: HEPATITIS C
     Dosage: 1.5 Microgram per kilogram, UNK
     Route: 058
     Dates: start: 20120502, end: 20120529
  14. REBETOL CAPSULES 200MG [Suspect]
     Indication: HEPATITIS C
     Dosage: 600 mg, qd
     Route: 048
     Dates: start: 20120502, end: 20120507
  15. REBETOL CAPSULES 200MG [Suspect]
     Dosage: 400 mg, qd
     Route: 048
     Dates: start: 20120508, end: 20120521
  16. REBETOL CAPSULES 200MG [Suspect]
     Dosage: 200 mg, qd
     Route: 048
     Dates: start: 20120522, end: 20120529
  17. TELAVIC [Suspect]
     Indication: HEPATITIS C
     Dosage: 2250 mg, qd
     Route: 048
     Dates: start: 20120501, end: 20120529
  18. URSO [Concomitant]
     Indication: HEPATITIS C
     Dosage: 600 mg, qd
     Route: 048
  19. ESTRIEL [Concomitant]
     Dosage: 2 mg, qd
     Route: 048
  20. ZETIA [Concomitant]
     Dosage: 10 mg, qd
     Route: 048
  21. NU-LOTAN [Concomitant]
     Dosage: 25 mg, UNK
     Route: 048

REACTIONS (3)
  - Herpes zoster [Recovering/Resolving]
  - Renal impairment [Not Recovered/Not Resolved]
  - Decreased appetite [Not Recovered/Not Resolved]
